FAERS Safety Report 8952856 (Version 1)
Quarter: 2012Q4

REPORT INFORMATION
  Report Type: 
  Country: CN (occurrence: CN)
  Receive Date: 20121203
  Receipt Date: 20121203
  Transmission Date: 20130627
  Serious: Yes (Other)
  Sender: FDA-Public Use
  Company Number: PHHY2012CN108951

PATIENT

DRUGS (4)
  1. TEGRETOL [Suspect]
     Indication: TRANSIENT ISCHAEMIC ATTACK
     Dosage: 0.2 g, QD
     Route: 048
     Dates: start: 20110807, end: 20110807
  2. TIAPRIDE [Concomitant]
  3. FENOFIBRATE [Concomitant]
  4. ACYCLOVIR [Concomitant]

REACTIONS (9)
  - Renal failure acute [Recovered/Resolved]
  - Urine output decreased [Unknown]
  - Rash [Recovered/Resolved]
  - Pruritus [Unknown]
  - Scab [Unknown]
  - Escherichia test positive [Unknown]
  - Nephrolithiasis [Unknown]
  - Pyelocaliectasis [Unknown]
  - Ureteric dilatation [Unknown]
